FAERS Safety Report 24967191 (Version 1)
Quarter: 2025Q1

REPORT INFORMATION
  Report Type: Spontaneous
  Country: CN (occurrence: CN)
  Receive Date: 20250213
  Receipt Date: 20250213
  Transmission Date: 20250409
  Serious: Yes (Other)
  Sender: ABBVIE
  Company Number: CN-ABBVIE-6130482

PATIENT
  Age: 61 Year
  Sex: Male
  Weight: 60 kg

DRUGS (1)
  1. LOPINAVIR\RITONAVIR [Suspect]
     Active Substance: LOPINAVIR\RITONAVIR
     Indication: Prophylaxis against HIV infection
     Dosage: 4 TABLET
     Route: 048
     Dates: start: 20250110, end: 20250210

REACTIONS (2)
  - Lipids increased [Not Recovered/Not Resolved]
  - Blood glucose increased [Not Recovered/Not Resolved]

NARRATIVE: CASE EVENT DATE: 20250201
